FAERS Safety Report 25921151 (Version 2)
Quarter: 2025Q4

REPORT INFORMATION
  Report Type: Spontaneous
  Country: US (occurrence: US)
  Receive Date: 20251014
  Receipt Date: 20251016
  Transmission Date: 20260117
  Serious: Yes (Other)
  Sender: APELLIS PHARMACEUTICALS
  Company Number: US-APELLIS-2025-APL-0001830

PATIENT

DRUGS (13)
  1. SYFOVRE [Suspect]
     Active Substance: PEGCETACOPLAN
     Indication: Dry age-related macular degeneration
     Dosage: OD, Q9WKS, INTRAVITREAL INJECTION OF SYFOVRE 15MG/0.1 ML
     Route: 031
  2. SYFOVRE [Suspect]
     Active Substance: PEGCETACOPLAN
     Dosage: OS, Q9WKS, INTRAVITREAL INJECTION OF SYFOVRE 15MG/0.1 ML
     Route: 031
  3. ASPIRIN [Concomitant]
     Active Substance: ASPIRIN
     Indication: Product used for unknown indication
     Dosage: 81 MG 1 TABLET QDAY BY MOUTH
     Route: 048
  4. VITAMIN D [Concomitant]
     Active Substance: VITAMIN D NOS
     Indication: Product used for unknown indication
     Dosage: 400UNITS 1 TABLET QDAY BY MOUTH
     Route: 048
  5. VITAMIN B12 [Concomitant]
     Active Substance: CYANOCOBALAMIN
     Indication: Product used for unknown indication
     Dosage: 1 TABLET QDAY BY MOUTH
     Route: 048
  6. ROSUVASTATIN CALCIUM [Concomitant]
     Active Substance: ROSUVASTATIN CALCIUM
     Indication: Product used for unknown indication
     Dosage: 5 MG ORAL 1 TABLET QDAY BY MOUTH
     Route: 048
  7. LEVOTHYROXINE SODIUM [Concomitant]
     Active Substance: LEVOTHYROXINE SODIUM
     Indication: Product used for unknown indication
     Dosage: 100 MG ORAL TABLET 1 TABLET QDAY BY MOUTH
     Route: 048
  8. ANASTROZOLE [Concomitant]
     Active Substance: ANASTROZOLE
     Indication: Product used for unknown indication
     Dosage: 1 MG ORAL TABLET, FILMCOATED [ANASTROZOLE] 1 MG QDAY BY MOUTH
     Route: 048
  9. LOSARTAN [Concomitant]
     Active Substance: LOSARTAN
     Indication: Product used for unknown indication
     Dosage: 50 MG 1 TABLET QDAY BY MOUTH
     Route: 048
  10. NIFEDIPINE [Concomitant]
     Active Substance: NIFEDIPINE
     Indication: Product used for unknown indication
     Dosage: 30MILLIGRAM 1 TABLET QDAY BY MOUTH
     Route: 048
  11. GEMTESA [Concomitant]
     Active Substance: VIBEGRON
     Indication: Product used for unknown indication
     Dosage: 75 MG 1 TABLET QDAY BY MOUTH
     Route: 048
  12. MINERALS\VITAMINS [Concomitant]
     Active Substance: MINERALS\VITAMINS
     Indication: Product used for unknown indication
     Dosage: 1 TABLET BID BY MOUTH
     Route: 048
  13. TIMOPTIC [Concomitant]
     Active Substance: TIMOLOL MALEATE
     Indication: Open angle glaucoma
     Dosage: 1 GTT QDAY OU
     Route: 050

REACTIONS (6)
  - Uveitis [Unknown]
  - Vitreous haemorrhage [Unknown]
  - Neovascular age-related macular degeneration [Unknown]
  - Choroidal neovascularisation [Unknown]
  - Lenticular opacities [Unknown]
  - Vision blurred [Unknown]
